FAERS Safety Report 6440053-2 (Version None)
Quarter: 2009Q4

REPORT INFORMATION
  Report Type: 
  Country: None (occurrence: None)
  Receive Date: 20091113
  Receipt Date: 20091109
  Transmission Date: 20100525
  Serious: Yes (Other)
  Sender: FDA-Public Use
  Company Number: GB-PFIZER INC-2009256716

PATIENT
  Age: 42 Year
  Sex: Male
  Weight: 123 kg

DRUGS (7)
  1. CHAMPIX [Suspect]
     Indication: SMOKING CESSATION THERAPY
     Dosage: 1 MG, 2X/DAY
     Route: 048
     Dates: start: 20090512, end: 20090819
  2. VENLAFAXINE [Interacting]
     Dosage: 150 MG, 1X/DAY
     Dates: start: 20090218
  3. VENLAFAXINE [Interacting]
     Dosage: 225 MG, 1X/DAY NOCTE
     Dates: start: 20090218
  4. LITHIUM [Interacting]
     Dosage: 1000 MG, 1X/DAY
     Dates: start: 20081208
  5. LITHIUM [Interacting]
     Dosage: 800 MG, 1X/DAY NOCTE
     Dates: start: 20090916
  6. QUETIAPINE [Interacting]
     Dosage: 600 MG, 1X/DAY
     Dates: start: 20081216
  7. QUETIAPINE [Interacting]
     Dosage: 300 MG, 1X/DAY
     Dates: start: 20090916

REACTIONS (4)
  - ANXIETY [None]
  - BIPOLAR DISORDER [None]
  - DEPRESSION [None]
  - DRUG INEFFECTIVE [None]
